FAERS Safety Report 25492845 (Version 1)
Quarter: 2025Q2

REPORT INFORMATION
  Report Type: Spontaneous
  Country: GB (occurrence: GB)
  Receive Date: 20250630
  Receipt Date: 20250630
  Transmission Date: 20250716
  Serious: Yes (Other)
  Sender: DR REDDYS
  Company Number: None

PATIENT

DRUGS (1)
  1. FINASTERIDE [Suspect]
     Active Substance: FINASTERIDE
     Indication: Alopecia

REACTIONS (4)
  - Depressed mood [Recovering/Resolving]
  - Loss of libido [Recovering/Resolving]
  - Ejaculation failure [Recovering/Resolving]
  - Penile pain [Recovering/Resolving]
